FAERS Safety Report 19117682 (Version 1)
Quarter: 2021Q2

REPORT INFORMATION
  Report Type: Spontaneous
  Country: US (occurrence: US)
  Receive Date: 20210409
  Receipt Date: 20210409
  Transmission Date: 20210717
  Serious: No
  Sender: FDA-Public Use
  Company Number: US-SA-2021SA117078

PATIENT
  Age: 2 Year
  Sex: Male

DRUGS (1)
  1. CHILDREN^S ALLEGRA ALLERGY [Suspect]
     Active Substance: FEXOFENADINE HYDROCHLORIDE
     Dosage: DRUG STRUCTURE DOSAGE : 2 TABLETS DRUG INTERVAL DOSAGE : ONCE
     Route: 065

REACTIONS (2)
  - Overdose [Unknown]
  - Expired product administered [Unknown]
